FAERS Safety Report 9086403 (Version 1)
Quarter: 2013Q1

REPORT INFORMATION
  Report Type: Spontaneous
  Country: FR (occurrence: FR)
  Receive Date: 20130131
  Receipt Date: 20130131
  Transmission Date: 20140127
  Serious: Yes (Hospitalization, Other)
  Sender: FDA-Public Use
  Company Number: FR-PFIZER INC-2013035650

PATIENT
  Age: 81 Year
  Sex: Male

DRUGS (12)
  1. LYRICA [Suspect]
     Indication: CAUDA EQUINA SYNDROME
     Dosage: 75 MG DAILY
     Route: 048
     Dates: start: 20121123, end: 20121208
  2. SERESTA [Concomitant]
     Dosage: UNK
  3. PROPANOLOL [Concomitant]
     Dosage: UNK
  4. ZOLADEX [Concomitant]
     Dosage: UNK
     Dates: start: 20070827
  5. CASODEX [Concomitant]
     Dosage: UNK
     Dates: start: 20070827
  6. MIANSERIN [Concomitant]
     Dosage: UNK
  7. FOLIC ACID [Concomitant]
     Dosage: UNK
  8. LASILIX [Concomitant]
     Dosage: UNK
  9. DIFFU K [Concomitant]
     Dosage: UNK
  10. IKOREL [Concomitant]
     Dosage: UNK
  11. GLUCOPHAGE [Concomitant]
     Dosage: UNK
     Dates: end: 20121208
  12. DUROGESIC [Concomitant]
     Dosage: UNK

REACTIONS (3)
  - Pancytopenia [Not Recovered/Not Resolved]
  - Gastroenteritis radiation [Not Recovered/Not Resolved]
  - Rectal haemorrhage [Not Recovered/Not Resolved]
